FAERS Safety Report 9436489 (Version 1)
Quarter: 2013Q3

REPORT INFORMATION
  Report Type: Report from Study
  Country: CN (occurrence: CN)
  Receive Date: 20130802
  Receipt Date: 20130802
  Transmission Date: 20140515
  Serious: Yes (Death)
  Sender: FDA-Public Use
  Company Number: CN-ROCHE-1253607

PATIENT
  Sex: 0

DRUGS (5)
  1. MYCOPHENOLATE MOFETIL [Suspect]
     Indication: IMMUNOSUPPRESSION
     Dosage: INITIAL DOSE: 1.5G/D
     Route: 048
  2. ANTITHYMOCYTE GLOBULIN [Concomitant]
     Route: 041
  3. METHYLPREDNISOLONE [Concomitant]
     Indication: IMMUNOSUPPRESSION
     Dosage: 500 MG/D
     Route: 041
  4. PREDNISONE [Concomitant]
     Indication: IMMUNOSUPPRESSION
     Route: 048
  5. TACROLIMUS [Concomitant]
     Indication: IMMUNOSUPPRESSION

REACTIONS (2)
  - Lung infection [Fatal]
  - Acute respiratory distress syndrome [Fatal]
